FAERS Safety Report 11770971 (Version 2)
Quarter: 2016Q1

REPORT INFORMATION
  Report Type: Spontaneous
  Country: US (occurrence: US)
  Receive Date: 20151123
  Receipt Date: 20160115
  Transmission Date: 20160525
  Serious: No
  Sender: FDA-Public Use
  Company Number: US-JNJFOC-20151024135

PATIENT
  Age: 56 Year
  Sex: Male
  Weight: 108.86 kg

DRUGS (2)
  1. SIMPONI [Suspect]
     Active Substance: GOLIMUMAB
     Indication: RHEUMATOID ARTHRITIS
     Route: 058
     Dates: start: 201509
  2. SIMPONI [Suspect]
     Active Substance: GOLIMUMAB
     Indication: BONE DISORDER
     Route: 058
     Dates: start: 201509

REACTIONS (4)
  - Product use issue [Unknown]
  - Off label use [Unknown]
  - Drug dose omission [Not Recovered/Not Resolved]
  - Device malfunction [Unknown]

NARRATIVE: CASE EVENT DATE: 20151028
